FAERS Safety Report 4728333-X (Version None)
Quarter: 2005Q3

REPORT INFORMATION
  Report Type: 
  Country: None (occurrence: None)
  Receive Date: 20050727
  Receipt Date: 20050714
  Transmission Date: 20060218
  Serious: Yes (Death)
  Sender: FDA-Public Use
  Company Number: 2005067194

PATIENT
  Age: 22 Year
  Sex: Male

DRUGS (11)
  1. GEODON [Suspect]
     Indication: SCHIZOPHRENIA
     Dosage: SEE IMGE
     Route: 048
     Dates: end: 20050325
  2. GEODON [Suspect]
     Indication: SCHIZOPHRENIA
     Dosage: SEE IMGE
     Route: 048
     Dates: start: 20050502
  3. PREVACID [Concomitant]
  4. BACLOFEN [Concomitant]
  5. PROPANOLOL (PROPANOLOL) [Concomitant]
  6. SEROQUEL [Concomitant]
  7. KEFLEX [Concomitant]
  8. HYDROCHLOROTHIAZIDE [Concomitant]
  9. GAVISCON [Concomitant]
  10. ACCUPRIL [Concomitant]
  11. VISTARIL [Concomitant]

REACTIONS (1)
  - OBESITY [None]
